FAERS Safety Report 8810875 (Version 1)
Quarter: 2012Q4

REPORT INFORMATION
  Report Type: Spontaneous
  Country: CA (occurrence: None)
  Receive Date: 20120921
  Receipt Date: 20120921
  Transmission Date: 20130627
  Serious: Yes (Hospitalization)
  Sender: FDA-Public Use
  Company Number: 2012AP003029

PATIENT
  Sex: Female

DRUGS (1)
  1. ACICLOVIR [Suspect]
     Indication: HERPES ZOSTER

REACTIONS (3)
  - Myoclonus [None]
  - Depressed level of consciousness [None]
  - Cardiac disorder [None]
